FAERS Safety Report 5456388-6 (Version None)
Quarter: 2007Q3

REPORT INFORMATION
  Report Type: 
  Country: None (occurrence: None)
  Receive Date: 20070918
  Receipt Date: 20070906
  Transmission Date: 20080115
  Serious: Yes (Other)
  Sender: FDA-Public Use
  Company Number: PHBS2007NL15196

PATIENT
  Sex: Male

DRUGS (3)
  1. TEGRETOL [Suspect]
     Indication: EPILEPSY
     Dosage: 300 MG, BID
  2. TEGRETOL [Suspect]
     Dosage: 100 MG, QD
  3. DIPIPERON [Concomitant]
     Dosage: 2-8 DRPS/DAY

REACTIONS (4)
  - CHEST DISCOMFORT [None]
  - FATIGUE [None]
  - HYPOACUSIS [None]
  - VISUAL ACUITY REDUCED [None]
